FAERS Safety Report 8251685-3 (Version None)
Quarter: 2012Q1

REPORT INFORMATION
  Report Type: 
  Country: None (occurrence: None)
  Receive Date: 20120328
  Receipt Date: 20120313
  Transmission Date: 20120608
  Serious: Yes (Hospitalization)
  Sender: FDA-Public Use
  Company Number: 2012MA003496

PATIENT
  Age: 76 Year
  Sex: Male

DRUGS (6)
  1. CARBASALATE CALCIUM [Concomitant]
  2. IRBESARTAN [Concomitant]
  3. DILTIAZEM HCL [Concomitant]
  4. NORTRIPTYLINE HCL [Concomitant]
  5. DOXAZOSIN MESYLATE [Suspect]
     Indication: HYPERTENSION
     Dosage: 4 MG;QD;PO
     Route: 048
     Dates: start: 20111223, end: 20120106
  6. AVODART [Concomitant]

REACTIONS (4)
  - BLOOD GLUCOSE INCREASED [None]
  - MENTAL DISORDER [None]
  - BLOOD PRESSURE SYSTOLIC INCREASED [None]
  - MOVEMENT DISORDER [None]
